FAERS Safety Report 11186695 (Version 4)
Quarter: 2017Q1

REPORT INFORMATION
  Report Type: Spontaneous
  Country: US (occurrence: US)
  Receive Date: 20150613
  Receipt Date: 20170127
  Transmission Date: 20170428
  Serious: Yes (Congenital Anomaly, Other)
  Sender: FDA-Public Use
  Company Number: US-APOTEX-2015AP008543

PATIENT
  Sex: Male

DRUGS (1)
  1. PAXIL [Suspect]
     Active Substance: PAROXETINE HYDROCHLORIDE
     Indication: PRODUCT USED FOR UNKNOWN INDICATION
     Route: 064

REACTIONS (12)
  - Cardiac murmur [Unknown]
  - Selective eating disorder [Unknown]
  - Foetal exposure during pregnancy [Unknown]
  - Cardiac septal defect [Unknown]
  - Congenital spondylolisthesis [Unknown]
  - Heart disease congenital [Unknown]
  - Klippel-Feil syndrome [Unknown]
  - Congenital scoliosis [Unknown]
  - Congenital anomaly [Unknown]
  - Hypoglycaemia neonatal [Unknown]
  - Patent ductus arteriosus [Unknown]
  - Spine malformation [Unknown]
